FAERS Safety Report 14069981 (Version 3)
Quarter: 2018Q1

REPORT INFORMATION
  Report Type: Spontaneous
  Country: AU (occurrence: AU)
  Receive Date: 20171011
  Receipt Date: 20180307
  Transmission Date: 20180508
  Serious: Yes (Hospitalization, Other)
  Sender: FDA-Public Use
  Company Number: AU-B.I. PHARMACEUTICALS,INC./RIDGEFIELD-2017-BI-053996

PATIENT
  Age: 74 Year
  Sex: Female

DRUGS (3)
  1. PRADAXA [Suspect]
     Active Substance: DABIGATRAN ETEXILATE MESYLATE
     Indication: ATRIAL FIBRILLATION
     Dosage: RECOMMENCED DAY 8
     Route: 065
  2. PRADAXA [Suspect]
     Active Substance: DABIGATRAN ETEXILATE MESYLATE
     Route: 065
  3. METOPROLOL. [Concomitant]
     Active Substance: METOPROLOL
     Indication: ATRIAL FIBRILLATION
     Route: 065

REACTIONS (10)
  - Malaise [Unknown]
  - Weight increased [Unknown]
  - Oedema peripheral [Unknown]
  - Pericardial effusion [Unknown]
  - Pericardial drainage [Unknown]
  - Dyspnoea [Unknown]
  - Nausea [Unknown]
  - Musculoskeletal pain [Unknown]
  - Dizziness [Unknown]
  - Hypotension [Unknown]
